FAERS Safety Report 23896103 (Version 1)
Quarter: 2024Q2

REPORT INFORMATION
  Report Type: Spontaneous
  Country: US (occurrence: US)
  Receive Date: 20240524
  Receipt Date: 20240524
  Transmission Date: 20240716
  Serious: Yes (Hospitalization)
  Sender: FDA-Public Use
  Company Number: US-MYLANLABS-2024M1046136

PATIENT
  Age: 63 Year
  Sex: Male

DRUGS (3)
  1. AMIODARONE [Suspect]
     Active Substance: AMIODARONE
     Indication: Arrhythmia prophylaxis
     Dosage: UNK; PRIOR TO THE CORONARY ARTERY BYPASS GRAFT PROCEDURE
     Route: 065
  2. AMIODARONE [Suspect]
     Active Substance: AMIODARONE
     Dosage: UNK; AMIODARONE DRIP WITH BOLUS
     Route: 065
  3. AMIODARONE [Suspect]
     Active Substance: AMIODARONE
     Dosage: UNK UNK, QD; AFTER THE PROCEDURE OF CORONARY ARTERY BYPASS GRAFT
     Route: 065

REACTIONS (2)
  - Drug ineffective [Unknown]
  - Eosinophilic pneumonia [Recovering/Resolving]
